FAERS Safety Report 5369915-4 (Version None)
Quarter: 2007Q2

REPORT INFORMATION
  Report Type: 
  Country: None (occurrence: None)
  Receive Date: 20070621
  Receipt Date: 20070605
  Transmission Date: 20071010
  Serious: Yes (Death)
  Sender: FDA-Public Use
  Company Number: 157234ISR

PATIENT
  Age: 79 Year
  Sex: Male

DRUGS (9)
  1. QUININE SULFATE [Suspect]
     Indication: MUSCLE SPASMS
     Dosage: 300 MG (300 MG,  1 IN 1 D) ORAL
     Route: 048
     Dates: start: 20070216, end: 20070309
  2. SIMVASTATIN [Suspect]
     Indication: BLOOD CHOLESTEROL INCREASED
     Dosage: 20 MG (20 MG, 1 IN 1 D) ORAL
     Route: 048
     Dates: end: 20070305
  3. CHLORPHENIRAMINE MALEATE [Suspect]
     Indication: ADVERSE DRUG REACTION
     Dosage: 12 MG (4 MG, 3 IN 1 D) ORAL
     Route: 048
     Dates: start: 20070228, end: 20070307
  4. TIGECYCLINE [Suspect]
     Indication: ENTEROBACTER INFECTION
     Dosage: SEE IMAGE
     Route: 042
     Dates: start: 20070305, end: 20070305
  5. TIGECYCLINE [Suspect]
     Indication: STAPHYLOCOCCAL INFECTION
     Dosage: SEE IMAGE
     Route: 042
     Dates: start: 20070305, end: 20070305
  6. TIGECYCLINE [Suspect]
     Indication: ENTEROBACTER INFECTION
     Dosage: SEE IMAGE
     Route: 042
     Dates: start: 20070306, end: 20070307
  7. TIGECYCLINE [Suspect]
     Indication: STAPHYLOCOCCAL INFECTION
     Dosage: SEE IMAGE
     Route: 042
     Dates: start: 20070306, end: 20070307
  8. TIGECYCLINE [Suspect]
     Indication: ENTEROBACTER INFECTION
     Dosage: SEE IMAGE
     Route: 042
     Dates: start: 20070310, end: 20070321
  9. TIGECYCLINE [Suspect]
     Indication: STAPHYLOCOCCAL INFECTION
     Dosage: SEE IMAGE
     Route: 042
     Dates: start: 20070310, end: 20070321

REACTIONS (3)
  - ALANINE AMINOTRANSFERASE INCREASED [None]
  - BLOOD ALKALINE PHOSPHATASE INCREASED [None]
  - BLOOD BILIRUBIN INCREASED [None]
